FAERS Safety Report 8386109-9 (Version None)
Quarter: 2012Q2

REPORT INFORMATION
  Report Type: 
  Country: None (occurrence: None)
  Receive Date: 20120523
  Receipt Date: 20120515
  Transmission Date: 20120825
  Serious: Yes (Hospitalization, Disabling, Other)
  Sender: FDA-Public Use
  Company Number: 2011MA005685

PATIENT
  Sex: Female
  Weight: 68.9467 kg

DRUGS (119)
  1. METOCLOPRAMIDE [Suspect]
     Indication: NAUSEA
     Dosage: 5 MG
     Dates: start: 20030611, end: 20080626
  2. ASPIRIN [Concomitant]
  3. BUPAP [Concomitant]
  4. DARVOCET-N 50 [Concomitant]
  5. ISORDIL [Concomitant]
  6. LEVA-PAK [Concomitant]
  7. LEVAQUIN [Concomitant]
  8. NIASPAN [Concomitant]
  9. PREDNISONE TAB [Concomitant]
  10. SILVADENE [Concomitant]
  11. SOLU-MEDROL [Concomitant]
  12. VITAMIN D [Concomitant]
  13. ZITHROMAX [Concomitant]
  14. AMOXICILLIN [Concomitant]
  15. CALCIUM [Concomitant]
  16. CEPHADYN [Concomitant]
  17. CEPHRADINE [Concomitant]
  18. DIGOXIN [Concomitant]
  19. FLOVENT [Concomitant]
  20. FOLIC ACID [Concomitant]
  21. HYDROCODONE BITARTRATE AND IBUPROFEN [Concomitant]
  22. HYDROXYZINE [Concomitant]
  23. IBUPROFEN [Concomitant]
  24. KETEK [Concomitant]
  25. MAXIFED DM [Concomitant]
  26. METOPROLOL TARTRATE [Concomitant]
  27. OXYCODONE HCL AND ACETAMINOPHEN [Concomitant]
  28. PROMETHAZINE [Concomitant]
  29. GUAIFENESIN [Concomitant]
  30. TRAMADOL HYDROCHLORIDE AND ACETAMINOPHEN [Concomitant]
  31. VALIUM [Concomitant]
  32. ZYPREXA [Concomitant]
  33. ALPRAZOLAM [Concomitant]
  34. CHANTIX [Concomitant]
  35. NIASPAN [Concomitant]
  36. IV STEROIDS [Concomitant]
  37. LISINOPRIL [Concomitant]
  38. LORTAB [Concomitant]
  39. PHENERGAN [Concomitant]
  40. PROAIR HFA [Concomitant]
  41. PROPDXYPHENE/NAPROXEN/ACETAMINOPHEN [Concomitant]
  42. PHENAZOPYRIDINE HCL TAB [Concomitant]
  43. VAZO-TUSS [Concomitant]
  44. ACETAMINOPHEN [Concomitant]
  45. AMOXICILLIN AND CLAVULANATE POTASSIUM [Concomitant]
  46. CIPROFLOXACIN [Concomitant]
  47. COLACE [Concomitant]
  48. CYCLOBENZAPRINE [Concomitant]
  49. DEPAKOTE [Concomitant]
  50. SODIUM PHOSPHATES [Concomitant]
  51. IRON/VITAMINS [Concomitant]
  52. METHYLPREDNISOLONE [Concomitant]
  53. PLAVIX [Concomitant]
  54. PRIMAXIN [Concomitant]
  55. PROTONIX [Concomitant]
  56. SPIRONOLACTONE [Concomitant]
  57. SULFAMETHOXAZOLE AND TRIMETHOPRIM [Concomitant]
  58. ZITHROMAX [Concomitant]
  59. ADVAIR DISKUS 100/50 [Concomitant]
  60. AUGMENTIN [Concomitant]
  61. CLONAZEPAM [Concomitant]
  62. DEPAKOTE ER [Concomitant]
  63. DURAGESIC-100 [Concomitant]
  64. FENTANYL-100 [Concomitant]
  65. HYOSCYAMINE [Concomitant]
  66. ISOSORBIDE DINITRATE [Concomitant]
  67. KLONOPIN [Concomitant]
  68. LEXAPRO [Concomitant]
  69. MAG-CITRATE [Concomitant]
  70. PHENAZOPYRIDINE HCL TAB [Concomitant]
  71. SEROQUEL [Concomitant]
  72. SONATA [Concomitant]
  73. VALTREX [Concomitant]
  74. VICODIN [Concomitant]
  75. ALENDRONATE SODIUM [Concomitant]
  76. BENZONATATE [Concomitant]
  77. CYCLOPENTOLATE HCL [Concomitant]
  78. FLUCONAZOLE [Concomitant]
  79. GLYCOLAX [Concomitant]
  80. HYDROMORPHONE HCL [Concomitant]
  81. LORAZEPAM [Concomitant]
  82. NEXIUM [Concomitant]
  83. NITROLINGUAL [Concomitant]
  84. POTASSIUM CHLORIDE [Concomitant]
  85. TUSSIONEX [Concomitant]
  86. ULTRAM [Concomitant]
  87. XANAX [Concomitant]
  88. ACYCLOVIR [Concomitant]
  89. AMBI [Concomitant]
  90. ATIVAN [Concomitant]
  91. BACTRIM [Concomitant]
  92. CEPHALEXIN [Concomitant]
  93. COMBIVENT [Concomitant]
  94. DILAUDID [Concomitant]
  95. EFFEXOR [Concomitant]
  96. FLAGYL [Concomitant]
  97. FUROSEMIDE [Concomitant]
  98. HYDROCODONE BITARTRATE AND ACETAMINOPHEN [Concomitant]
  99. LOVENOX [Concomitant]
  100. MUPIROCIN [Concomitant]
  101. PNEUMOTUSSIN [Concomitant]
  102. PROVENTIL [Concomitant]
  103. ROCEPHIN [Concomitant]
  104. TOPAMAX [Concomitant]
  105. ZOSYN [Concomitant]
  106. ZELNORM [Concomitant]
  107. DULCOLAX [Concomitant]
  108. LASIX [Concomitant]
  109. LIPITOR [Concomitant]
  110. MUCINEX [Concomitant]
  111. NICODERM [Concomitant]
  112. PERCOCET [Concomitant]
  113. QUIXIN [Concomitant]
  114. SPIRIVA [Concomitant]
  115. TRIFLURIDINE [Concomitant]
  116. TYGACIL [Concomitant]
  117. VYTORIN [Concomitant]
  118. XOPENEX [Concomitant]
  119. ZOLPIDEM [Concomitant]

REACTIONS (100)
  - ECONOMIC PROBLEM [None]
  - HYPOTENSION [None]
  - LIVER DISORDER [None]
  - DRUG DEPENDENCE [None]
  - TREMOR [None]
  - AGITATION [None]
  - IMPAIRED GASTRIC EMPTYING [None]
  - CORONARY ARTERY DISEASE [None]
  - HYPONATRAEMIA [None]
  - VOMITING [None]
  - BREAKTHROUGH PAIN [None]
  - MEMORY IMPAIRMENT [None]
  - HEPATITIS B [None]
  - OROPHARYNGEAL CANDIDIASIS [None]
  - KLEBSIELLA INFECTION [None]
  - FALL [None]
  - SCAB [None]
  - OBESITY [None]
  - ALCOHOL USE [None]
  - ANGER [None]
  - VOMITING PSYCHOGENIC [None]
  - DEVICE OCCLUSION [None]
  - CHRONIC OBSTRUCTIVE PULMONARY DISEASE [None]
  - NAUSEA [None]
  - CONSTIPATION [None]
  - SUPRAVENTRICULAR TACHYCARDIA [None]
  - STAPHYLOCOCCAL SEPSIS [None]
  - RENAL ATROPHY [None]
  - GASTROENTERITIS [None]
  - DEPRESSION [None]
  - MENTAL DISORDER [None]
  - PYREXIA [None]
  - WRIST FRACTURE [None]
  - BIPOLAR DISORDER [None]
  - JOINT CREPITATION [None]
  - ANXIETY [None]
  - BRONCHITIS [None]
  - PAIN IN EXTREMITY [None]
  - DEATH OF COMPANION [None]
  - DRUG WITHDRAWAL SYNDROME [None]
  - GAIT DISTURBANCE [None]
  - WHEEZING [None]
  - SOMNAMBULISM [None]
  - ALCOHOL WITHDRAWAL SYNDROME [None]
  - EXTRAPYRAMIDAL DISORDER [None]
  - TARDIVE DYSKINESIA [None]
  - SUICIDAL IDEATION [None]
  - SOMATOFORM DISORDER [None]
  - PNEUMONIA [None]
  - ANGINA PECTORIS [None]
  - OEDEMA PERIPHERAL [None]
  - BRONCHITIS BACTERIAL [None]
  - SCRATCH [None]
  - PASSIVE SMOKING [None]
  - VASCULAR GRAFT COMPLICATION [None]
  - PAIN [None]
  - PERSONALITY CHANGE [None]
  - COLITIS ISCHAEMIC [None]
  - OSTEOARTHRITIS [None]
  - ARTHRALGIA [None]
  - OROPHARYNGEAL PAIN [None]
  - ABDOMINAL PAIN [None]
  - HEADACHE [None]
  - ABDOMINAL DISTENSION [None]
  - THERMAL BURN [None]
  - SPUTUM CULTURE POSITIVE [None]
  - MOVEMENT DISORDER [None]
  - UNEVALUABLE EVENT [None]
  - URINARY TRACT INFECTION [None]
  - ILEUS [None]
  - ORAL HERPES [None]
  - VASCULAR GRAFT OCCLUSION [None]
  - HYPERLIPIDAEMIA [None]
  - NICOTINE DEPENDENCE [None]
  - OSTEOPOROSIS [None]
  - CARDIAC FAILURE CONGESTIVE [None]
  - SINUSITIS [None]
  - EMPHYSEMA [None]
  - BACK PAIN [None]
  - URINARY RETENTION [None]
  - ASTHENIA [None]
  - MICROCYTIC ANAEMIA [None]
  - GENERALISED OEDEMA [None]
  - SEPSIS [None]
  - BURNS SECOND DEGREE [None]
  - BLOOD PHOSPHORUS INCREASED [None]
  - PANCREATITIS [None]
  - GASTROOESOPHAGEAL REFLUX DISEASE [None]
  - SPINAL COLUMN STENOSIS [None]
  - HERPES SIMPLEX OPHTHALMIC [None]
  - CYSTITIS INTERSTITIAL [None]
  - DEHYDRATION [None]
  - HYPERTENSION [None]
  - IRRITABLE BOWEL SYNDROME [None]
  - NERVOUS SYSTEM DISORDER [None]
  - DYSURIA [None]
  - CONVULSION [None]
  - SOMNOLENCE [None]
  - KLEBSIELLA TEST POSITIVE [None]
  - FUNGAL INFECTION [None]
